FAERS Safety Report 14565324 (Version 1)
Quarter: 2018Q1

REPORT INFORMATION
  Report Type: Spontaneous
  Country: US (occurrence: US)
  Receive Date: 20180223
  Receipt Date: 20180223
  Transmission Date: 20180509
  Serious: No
  Sender: FDA-Public Use
  Company Number: US-ASTRAZENECA-2018SE11520

PATIENT

DRUGS (1)
  1. LYNPARZA [Suspect]
     Active Substance: OLAPARIB
     Route: 048

REACTIONS (7)
  - Anaemia [Unknown]
  - Drug intolerance [Unknown]
  - Dysgeusia [Unknown]
  - Fatigue [Unknown]
  - Product use issue [Unknown]
  - Nausea [Unknown]
  - Headache [Unknown]
